FAERS Safety Report 5777602-3 (Version None)
Quarter: 2008Q2

REPORT INFORMATION
  Report Type: 
  Country: None (occurrence: None)
  Receive Date: 20080618
  Receipt Date: 20080606
  Transmission Date: 20081010
  Serious: Yes (Other)
  Sender: FDA-Public Use
  Company Number: GB-PFIZER INC-2008016745

PATIENT
  Sex: Female
  Weight: 53 kg

DRUGS (8)
  1. CHANTIX [Suspect]
     Route: 048
     Dates: start: 20071130, end: 20080106
  2. TEMAZEPAM [Concomitant]
     Route: 048
  3. OMEPRAZOLE [Concomitant]
     Route: 048
  4. DIHYDROCODEINE [Concomitant]
     Route: 048
  5. FLUOXETINE [Concomitant]
     Route: 048
  6. LISINOPRIL [Concomitant]
     Route: 048
  7. HYDROCHLOROTHIAZIDE [Concomitant]
  8. ALCOHOL [Concomitant]

REACTIONS (2)
  - DEPRESSION [None]
  - NAUSEA [None]
